FAERS Safety Report 5353838-0 (Version None)
Quarter: 2007Q2

REPORT INFORMATION
  Report Type: 
  Country: None (occurrence: None)
  Receive Date: 20070521
  Receipt Date: 20070129
  Transmission Date: 20071010
  Serious: No
  Sender: FDA-Public Use
  Company Number: WAES 0701USA04782

PATIENT
  Age: 70 Year
  Sex: Female
  Weight: 54.4316 kg

DRUGS (4)
  1. JANUVIA [Suspect]
     Indication: DIABETES MELLITUS
     Dosage: 100 MG/BID/PO
     Route: 048
     Dates: start: 20070116
  2. FOSAMAX [Concomitant]
  3. GLUCOVANCE [Concomitant]
  4. [LANTUST)HERAPY UNSPECIFIED] [Concomitant]

REACTIONS (6)
  - EYE SWELLING [None]
  - NIGHT SWEATS [None]
  - OEDEMA MOUTH [None]
  - OVERDOSE [None]
  - SWELLING FACE [None]
  - UPPER RESPIRATORY TRACT INFECTION [None]
